FAERS Safety Report 7029207-4 (Version None)
Quarter: 2010Q4

REPORT INFORMATION
  Report Type: 
  Country: None (occurrence: None)
  Receive Date: 20101005
  Receipt Date: 20100921
  Transmission Date: 20110411
  Serious: Yes (Hospitalization)
  Sender: FDA-Public Use
  Company Number: BR-MYLANLABS-2010S1017281

PATIENT
  Sex: Female

DRUGS (2)
  1. AMIODARONE [Suspect]
     Route: 065
  2. FLUNARIZINE [Interacting]
     Route: 065

REACTIONS (2)
  - DRUG INTERACTION [None]
  - PROGRESSIVE SUPRANUCLEAR PALSY [None]
